FAERS Safety Report 11219947 (Version 1)
Quarter: 2015Q2

REPORT INFORMATION
  Report Type: Spontaneous
  Country: US (occurrence: None)
  Receive Date: 20150624
  Receipt Date: 20150624
  Transmission Date: 20150821
  Serious: Yes (Other)
  Sender: FDA-Public Use
  Company Number: None

PATIENT
  Age: 54 Year
  Sex: Male
  Weight: 97.52 kg

DRUGS (3)
  1. TRANDO/VERAP TAB (TRANDOLAPRIL/VERAPAMIL) 2/240 GREENSTONE [Suspect]
     Active Substance: TRANDOLAPRIL\VERAPAMIL
     Indication: HYPERTENSION
     Dosage: 2/240  ONCE DAILY TAKEN BY MOUTH
     Route: 048
     Dates: start: 20150413, end: 20150620
  2. SPIRONLACTONE [Concomitant]
  3. CENTRUM OVER 54 MULTIVITAMIN [Concomitant]

REACTIONS (11)
  - Pain [None]
  - Gait disturbance [None]
  - Pain in extremity [None]
  - Oedema peripheral [None]
  - Hypoaesthesia [None]
  - Joint swelling [None]
  - Swelling [None]
  - Pollakiuria [None]
  - Back pain [None]
  - Local swelling [None]
  - Product substitution issue [None]

NARRATIVE: CASE EVENT DATE: 20150620
